FAERS Safety Report 13245917 (Version 2)
Quarter: 2017Q1

REPORT INFORMATION
  Report Type: Spontaneous
  Country: US (occurrence: US)
  Receive Date: 20170217
  Receipt Date: 20170227
  Transmission Date: 20170428
  Serious: Yes (Hospitalization)
  Sender: FDA-Public Use
  Company Number: US-MALLINCKRODT-T201700535

PATIENT
  Age: 75 Year
  Sex: Female
  Weight: 48 kg

DRUGS (7)
  1. TRAZODONE [Concomitant]
     Active Substance: TRAZODONE HYDROCHLORIDE
  2. LIPITOR [Concomitant]
     Active Substance: ATORVASTATIN CALCIUM
  3. NEURONTIN [Concomitant]
     Active Substance: GABAPENTIN
  4. PROZAC [Concomitant]
     Active Substance: FLUOXETINE HYDROCHLORIDE
  5. PRILOSEC [Concomitant]
     Active Substance: OMEPRAZOLE MAGNESIUM
  6. FENTANYL TRANSDERMAL SYSTEM [Suspect]
     Active Substance: FENTANYL
     Indication: ABDOMINAL PAIN UPPER
     Dosage: 25 MCG/HR, Q72HR
     Route: 062
     Dates: start: 20170104, end: 20170211
  7. ATIVAN [Concomitant]
     Active Substance: LORAZEPAM

REACTIONS (4)
  - Gallbladder disorder [Not Recovered/Not Resolved]
  - Rash pruritic [Not Recovered/Not Resolved]
  - Therapy cessation [Not Recovered/Not Resolved]
  - Colitis [Recovering/Resolving]

NARRATIVE: CASE EVENT DATE: 201702
